FAERS Safety Report 6063106-X (Version None)
Quarter: 2009Q1

REPORT INFORMATION
  Report Type: 
  Country: None (occurrence: None)
  Receive Date: 20090203
  Receipt Date: 20090128
  Transmission Date: 20090719
  Serious: Yes (Hospitalization)
  Sender: FDA-Public Use
  Company Number: FR-BRISTOL-MYERS SQUIBB COMPANY-14055859

PATIENT
  Age: 54 Year
  Sex: Male
  Weight: 59 kg

DRUGS (7)
  1. SUSTIVA [Suspect]
     Indication: HIV INFECTION
     Dates: start: 20080114
  2. TRUVADA [Suspect]
     Indication: HIV INFECTION
     Dosage: 1 DOSAGE FORM = 1 TAB
     Dates: start: 20080114
  3. RIFAMPICIN [Concomitant]
     Indication: TUBERCULOSIS
     Dates: start: 20071218
  4. ETHAMBUTOL HYDROCHLORIDE [Concomitant]
     Indication: TUBERCULOSIS
     Dates: start: 20071218
  5. RIMIFON [Concomitant]
     Indication: TUBERCULOSIS
     Dates: start: 20071231
  6. BACTRIM [Concomitant]
     Indication: PROPHYLAXIS
     Dates: start: 20071220
  7. MOXIFLOXACIN [Concomitant]
     Dates: start: 20071218

REACTIONS (4)
  - COUGH [None]
  - IMMUNE RECONSTITUTION SYNDROME [None]
  - LYMPHADENOPATHY [None]
  - PYREXIA [None]
